FAERS Safety Report 16305833 (Version 1)
Quarter: 2019Q2

REPORT INFORMATION
  Report Type: Spontaneous
  Country: US (occurrence: US)
  Receive Date: 20190512
  Receipt Date: 20190512
  Transmission Date: 20190711
  Serious: No
  Sender: FDA-Public Use
  Company Number: None

PATIENT
  Age: 70 Year
  Sex: Male
  Weight: 73.8 kg

DRUGS (7)
  1. ATORVASTATIN [Concomitant]
     Active Substance: ATORVASTATIN
  2. EZETIMIBE. [Concomitant]
     Active Substance: EZETIMIBE
  3. ASPIRIN. [Concomitant]
     Active Substance: ASPIRIN
  4. REPATHA [Suspect]
     Active Substance: EVOLOCUMAB
     Indication: BLOOD CHOLESTEROL INCREASED
     Route: 058
     Dates: start: 20190309
  5. CARVIDOLOL [Concomitant]
  6. VIT D [Concomitant]
     Active Substance: VITAMIN D NOS
  7. VITAMIN B12 [Concomitant]
     Active Substance: CYANOCOBALAMIN

REACTIONS (3)
  - Pain in extremity [None]
  - Palmar-plantar erythrodysaesthesia syndrome [None]
  - Erythromelalgia [None]

NARRATIVE: CASE EVENT DATE: 20190413
